FAERS Safety Report 6422225-6 (Version None)
Quarter: 2009Q4

REPORT INFORMATION
  Report Type: 
  Country: None (occurrence: None)
  Receive Date: 20091030
  Receipt Date: 20091027
  Transmission Date: 20100525
  Serious: Yes (Death, Hospitalization)
  Sender: FDA-Public Use
  Company Number: PHEH2009US14281

PATIENT
  Sex: Female

DRUGS (1)
  1. EXJADE [Suspect]
     Indication: SICKLE CELL ANAEMIA
     Dosage: ALTERNATING 2000 MG PER DAY ORALLY WITH 2500 MG PER DAY ORALLY EVERY OTHER DAY
     Dates: start: 20070427

REACTIONS (2)
  - CEREBRAL HAEMORRHAGE [None]
  - DEATH [None]
